FAERS Safety Report 17241818 (Version 1)
Quarter: 2020Q1

REPORT INFORMATION
  Report Type: Spontaneous
  Country: US (occurrence: US)
  Receive Date: 20200107
  Receipt Date: 20200107
  Transmission Date: 20200409
  Serious: Yes (Death, Other)
  Sender: FDA-Public Use
  Company Number: US-ABBVIE-20K-163-3220945-00

PATIENT

DRUGS (3)
  1. BORTEZOMIB. [Suspect]
     Active Substance: BORTEZOMIB
     Indication: PLASMA CELL MYELOMA RECURRENT
     Route: 065
  2. DEXAMETHASONE. [Suspect]
     Active Substance: DEXAMETHASONE
     Indication: PLASMA CELL MYELOMA RECURRENT
     Route: 065
  3. VENETOCLAX. [Suspect]
     Active Substance: VENETOCLAX
     Indication: PLASMA CELL MYELOMA RECURRENT
     Route: 048

REACTIONS (10)
  - Failure to thrive [Fatal]
  - Upper gastrointestinal haemorrhage [Unknown]
  - Fatigue [Unknown]
  - Epistaxis [Unknown]
  - Off label use [Unknown]
  - Haematemesis [Unknown]
  - Plasma cell myeloma recurrent [Fatal]
  - Anaemia [Unknown]
  - Haematochezia [Unknown]
  - Thrombocytopenia [Unknown]
